FAERS Safety Report 10100592 (Version 2)
Quarter: 2014Q2

REPORT INFORMATION
  Report Type: Spontaneous
  Country: NO (occurrence: NO)
  Receive Date: 20140423
  Receipt Date: 20140424
  Transmission Date: 20141212
  Serious: Yes (Other)
  Sender: FDA-Public Use
  Company Number: PHHY2014NO049234

PATIENT
  Sex: Female

DRUGS (1)
  1. TEGRETOL [Suspect]
     Dosage: UNK UKN, BID

REACTIONS (3)
  - Convulsion [Unknown]
  - Incorrect dose administered [Unknown]
  - Drug effect incomplete [Unknown]
